FAERS Safety Report 21010942 (Version 5)
Quarter: 2025Q3

REPORT INFORMATION
  Report Type: Spontaneous
  Country: CA (occurrence: CA)
  Receive Date: 20220627
  Receipt Date: 20250710
  Transmission Date: 20251020
  Serious: Yes (Hospitalization, Other)
  Sender: JAZZ
  Company Number: CA-GW PHARMA-2022-CA-021041

PATIENT
  Age: 44 Year
  Sex: Male

DRUGS (16)
  1. EPIDIOLEX [Suspect]
     Active Substance: CANNABIDIOL
     Indication: Neuralgia
  2. AMITRIPTYLINE [Suspect]
     Active Substance: AMITRIPTYLINE
     Indication: Neuralgia
  3. DELTA(9)-TETRAHYDROCANNABINOLIC ACID [Suspect]
     Active Substance: DELTA(9)-TETRAHYDROCANNABINOLIC ACID
     Indication: Neuralgia
  4. DRONABINOL [Suspect]
     Active Substance: DRONABINOL
     Indication: Analgesic therapy
  5. DULOXETINE HYDROCHLORIDE [Suspect]
     Active Substance: DULOXETINE HYDROCHLORIDE
     Indication: Neuralgia
  6. DULOXETINE [Suspect]
     Active Substance: DULOXETINE
     Indication: Neuralgia
  7. KETAMINE [Suspect]
     Active Substance: KETAMINE
     Indication: Product used for unknown indication
  8. KETAMINE [Suspect]
     Active Substance: KETAMINE
     Indication: Neuralgia
     Route: 042
  9. KETAMINE [Suspect]
     Active Substance: KETAMINE
     Route: 042
  10. MIDAZOLAM [Suspect]
     Active Substance: MIDAZOLAM
     Indication: Prophylaxis
     Route: 042
  11. TEMAZEPAM [Suspect]
     Active Substance: TEMAZEPAM
     Indication: Neuralgia
  12. ZOPICLONE [Suspect]
     Active Substance: ZOPICLONE
     Indication: Neuralgia
  13. DEXAMETHASONE [Concomitant]
     Active Substance: DEXAMETHASONE
     Indication: Prophylaxis
     Route: 042
  14. LIDOCAINE [Concomitant]
     Active Substance: LIDOCAINE
     Indication: Analgesic therapy
  15. MAGNESIUM SULFATE [Concomitant]
     Active Substance: MAGNESIUM SULFATE
     Indication: Analgesic therapy
  16. ONDANSETRON [Concomitant]
     Active Substance: ONDANSETRON
     Indication: Prophylaxis
     Route: 042

REACTIONS (13)
  - Behaviour disorder [Recovered/Resolved]
  - Confusional state [Recovered/Resolved]
  - Disinhibition [Recovered/Resolved]
  - Drug interaction [Recovered/Resolved]
  - Drug level increased [Recovered/Resolved]
  - Hypersexuality [Recovered/Resolved]
  - Psychotic disorder [Recovered/Resolved]
  - Hypoaesthesia [Recovered/Resolved]
  - Scar pain [Recovered/Resolved]
  - Restlessness [Recovered/Resolved]
  - Agitation [Recovered/Resolved]
  - Aggression [Recovered/Resolved]
  - Off label use [Unknown]
